FAERS Safety Report 7323551-9 (Version None)
Quarter: 2011Q1

REPORT INFORMATION
  Report Type: 
  Country: None (occurrence: None)
  Receive Date: 20110301
  Receipt Date: 20110217
  Transmission Date: 20110831
  Serious: Yes (Other)
  Sender: FDA-Public Use
  Company Number: AU-ROCHE-760767

PATIENT
  Sex: Female

DRUGS (1)
  1. XENICAL [Suspect]
     Route: 065

REACTIONS (1)
  - VENTRICULAR TACHYCARDIA [None]
